FAERS Safety Report 15374243 (Version 1)
Quarter: 2018Q3

REPORT INFORMATION
  Report Type: Spontaneous
  Country: US (occurrence: US)
  Receive Date: 20180912
  Receipt Date: 20180912
  Transmission Date: 20181010
  Serious: Yes (Other)
  Sender: FDA-Public Use
  Company Number: US-ENDO PHARMACEUTICALS INC-2018-041069

PATIENT
  Age: 56 Year
  Sex: Male
  Weight: 86.17 kg

DRUGS (3)
  1. XIAFLEX [Suspect]
     Active Substance: COLLAGENASE CLOSTRIDIUM HISTOLYTICUM
     Indication: PEYRONIE^S DISEASE
     Dosage: UNK MG, CYCLE 2, INJECTION 2
     Route: 026
     Dates: start: 20180801
  2. XIAFLEX [Suspect]
     Active Substance: COLLAGENASE CLOSTRIDIUM HISTOLYTICUM
     Dosage: UNK MG, CYCLE 2, INJECTION 1
     Route: 026
     Dates: start: 20180730
  3. XIAFLEX [Suspect]
     Active Substance: COLLAGENASE CLOSTRIDIUM HISTOLYTICUM
     Dosage: UNK MG, CYCLE 1, INJECTION 1 AND 2
     Route: 026

REACTIONS (1)
  - Fracture of penis [Not Recovered/Not Resolved]

NARRATIVE: CASE EVENT DATE: 20180801
